FAERS Safety Report 25818892 (Version 1)
Quarter: 2025Q3

REPORT INFORMATION
  Report Type: Spontaneous
  Country: US (occurrence: US)
  Receive Date: 20250918
  Receipt Date: 20250918
  Transmission Date: 20251021
  Serious: No
  Sender: WAYLIS THERAPEUTICS
  Company Number: US-WAYLIS-2025-US-034323

PATIENT
  Age: 70 Year
  Sex: Male

DRUGS (3)
  1. CARVEDILOL [Suspect]
     Active Substance: CARVEDILOL
     Indication: Blood pressure increased
  2. JAKAFI [Suspect]
     Active Substance: RUXOLITINIB
     Dates: start: 20241202
  3. BESREMI [Concomitant]
     Active Substance: ROPEGINTERFERON ALFA-2B-NJFT

REACTIONS (3)
  - Laboratory test abnormal [Unknown]
  - Blood pressure increased [Unknown]
  - Drug ineffective [Unknown]
